FAERS Safety Report 25363854 (Version 1)
Quarter: 2025Q2

REPORT INFORMATION
  Report Type: Spontaneous
  Country: US (occurrence: None)
  Receive Date: 20250527
  Receipt Date: 20250527
  Transmission Date: 20250716
  Serious: Yes (Death)
  Sender: FDA-CTU
  Company Number: None

PATIENT
  Sex: Female

DRUGS (4)
  1. LENALIDOMIDE [Suspect]
     Active Substance: LENALIDOMIDE
     Indication: Myelodysplastic syndrome
     Dosage: FREQUENCY : DAILY;?
     Route: 048
     Dates: start: 20250425
  2. FOSAMAX [Concomitant]
     Active Substance: ALENDRONATE SODIUM
  3. LENALIDOMIDE [Concomitant]
     Active Substance: LENALIDOMIDE
  4. MULTIVITAMIN TAB ADLT 50+ [Concomitant]

REACTIONS (1)
  - Death [None]
